FAERS Safety Report 8371908-X (Version None)
Quarter: 2012Q2

REPORT INFORMATION
  Report Type: 
  Country: None (occurrence: None)
  Receive Date: 20120518
  Receipt Date: 20120514
  Transmission Date: 20120825
  Serious: Yes (Other)
  Sender: FDA-Public Use
  Company Number: CA-ROCHE-1062573

PATIENT
  Sex: Male
  Weight: 81.72 kg

DRUGS (1)
  1. ACCUTANE [Suspect]
     Indication: ACNE
     Route: 048
     Dates: start: 20120101, end: 20120101

REACTIONS (11)
  - INSOMNIA [None]
  - CRYING [None]
  - PANIC ATTACK [None]
  - DISTURBANCE IN ATTENTION [None]
  - DEPRESSION [None]
  - ERECTILE DYSFUNCTION [None]
  - SUICIDAL IDEATION [None]
  - DISTURBANCE IN SEXUAL AROUSAL [None]
  - MOOD ALTERED [None]
  - WEIGHT DECREASED [None]
  - DECREASED APPETITE [None]
